FAERS Safety Report 6045742-X (Version None)
Quarter: 2009Q1

REPORT INFORMATION
  Report Type: 
  Country: None (occurrence: None)
  Receive Date: 20090121
  Receipt Date: 20090109
  Transmission Date: 20090719
  Serious: Yes (Other)
  Sender: FDA-Public Use
  Company Number: ES-PFIZER INC-2008156627

PATIENT

DRUGS (1)
  1. CHAMPIX [Suspect]
     Dosage: EVERY DAY
     Route: 048
     Dates: start: 20071219, end: 20080214

REACTIONS (1)
  - ABNORMAL BEHAVIOUR [None]
